FAERS Safety Report 25135735 (Version 1)
Quarter: 2025Q1

REPORT INFORMATION
  Report Type: Spontaneous
  Country: BG (occurrence: BG)
  Receive Date: 20250328
  Receipt Date: 20250328
  Transmission Date: 20250409
  Serious: Yes (Hospitalization, Other)
  Sender: PFIZER
  Company Number: BG-NORGINE LIMITED-NOR202501079

PATIENT
  Age: 77 Year
  Sex: Male
  Weight: 70 kg

DRUGS (6)
  1. TALAZOPARIB [Suspect]
     Active Substance: TALAZOPARIB
     Indication: Prostate cancer
     Dosage: UNK, DAILY
     Route: 048
     Dates: start: 20221026, end: 20230227
  2. ENZALUTAMIDE [Suspect]
     Active Substance: ENZALUTAMIDE
     Dosage: 160 MG, 1X/DAY
     Route: 048
     Dates: start: 20221026, end: 20230227
  3. SINTROM [Suspect]
     Active Substance: ACENOCOUMAROL
     Indication: Cardiac failure
     Route: 065
     Dates: start: 20230224, end: 20230224
  4. SINTROM [Suspect]
     Active Substance: ACENOCOUMAROL
     Dates: start: 20230225, end: 20230225
  5. SINTROM [Suspect]
     Active Substance: ACENOCOUMAROL
     Dates: start: 20230226, end: 20230226
  6. SINTROM [Suspect]
     Active Substance: ACENOCOUMAROL
     Dates: start: 20230227, end: 20230227

REACTIONS (4)
  - Pancytopenia [Recovered/Resolved]
  - International normalised ratio increased [Unknown]
  - Prothrombin time shortened [Unknown]
  - Activated partial thromboplastin time prolonged [Unknown]

NARRATIVE: CASE EVENT DATE: 20230228
